FAERS Safety Report 4864870-5 (Version None)
Quarter: 2005Q4

REPORT INFORMATION
  Report Type: 
  Country: None (occurrence: None)
  Receive Date: 20051201
  Receipt Date: 20050726
  Transmission Date: 20060501
  Serious: No
  Sender: FDA-Public Use
  Company Number: 2005PV000556

PATIENT
  Age: 58 Year
  Sex: Female

DRUGS (7)
  1. BYETTA [Suspect]
     Indication: INSULIN RESISTANT DIABETES
     Dosage: 5 MCG; BID; SC
     Route: 058
     Dates: start: 20050726
  2. LIPITOR [Concomitant]
  3. AMARYL [Concomitant]
  4. MULTIVITAMIN [Concomitant]
  5. ASPIRIN [Concomitant]
  6. LANTUS [Concomitant]
  7. HUMALOG [Concomitant]

REACTIONS (3)
  - BALANCE DISORDER [None]
  - BLOOD GLUCOSE INCREASED [None]
  - NAUSEA [None]
